FAERS Safety Report 6238012 (Version 4)
Quarter: 2013Q1

REPORT INFORMATION
  Report Type: Report from Study
  Country: FR (occurrence: FR)
  Receive Date: 20070214
  Receipt Date: 20130325
  Transmission Date: 20140127
  Serious: Yes (Death, Life-Threatening, Hospitalization)
  Sender: FDA-Public Use
  Company Number: FR-PFIZER INC-2007007763

PATIENT
  Age: 62 Year
  Sex: Male
  Weight: 72 kg

DRUGS (9)
  1. SUNITINIB MALATE [Suspect]
     Indication: HEPATIC CANCER
     Dosage: 50 MG, 4 WEEKS ON /  2 WEEKS OFF
     Route: 048
     Dates: start: 20060420, end: 20070124
  2. BROMAZEPAM [Concomitant]
     Route: 048
     Dates: start: 200605
  3. METHYLPREDNISOLONE [Concomitant]
     Route: 048
     Dates: start: 1990
  4. VALSARTAN [Concomitant]
     Route: 048
     Dates: start: 1999
  5. DI-ANTALVIC [Concomitant]
     Route: 048
     Dates: start: 200604
  6. PRAVASTATIN SODIUM [Concomitant]
     Route: 048
     Dates: start: 2006
  7. DIFLUCORTOLONE VALERATE [Concomitant]
     Route: 048
     Dates: start: 20060503
  8. BUFEXAMAC [Concomitant]
     Route: 061
     Dates: start: 20061003
  9. OXYCODONE [Concomitant]
     Route: 048
     Dates: start: 20070125

REACTIONS (5)
  - Renal failure [Fatal]
  - Coma [Unknown]
  - Pain [Unknown]
  - Blood creatine increased [Unknown]
  - Hyperuricaemia [Unknown]
